FAERS Safety Report 6030410-0 (Version None)
Quarter: 2008Q4

REPORT INFORMATION
  Report Type: 
  Country: None (occurrence: None)
  Receive Date: 20081222
  Receipt Date: 20080919
  Transmission Date: 20090506
  Serious: Yes (Other)
  Sender: FDA-Public Use
  Company Number: US-WYE-H05228708

PATIENT
  Age: 55 Year
  Sex: Male
  Weight: 79.45 kg

DRUGS (1)
  1. PRISTIQ [Suspect]
     Indication: DEPRESSION
     Dosage: 50 MG, UNSPECIFIED FREQUENCY, ORAL
     Route: 048
     Dates: start: 20080805, end: 20080809

REACTIONS (4)
  - DRY MOUTH [None]
  - INSOMNIA [None]
  - NAUSEA [None]
  - SOMNOLENCE [None]
